FAERS Safety Report 17276837 (Version 1)
Quarter: 2020Q1

REPORT INFORMATION
  Report Type: Spontaneous
  Country: US (occurrence: US)
  Receive Date: 20200116
  Receipt Date: 20200116
  Transmission Date: 20200409
  Serious: Yes (Other)
  Sender: FDA-Public Use
  Company Number: US-PFIZER INC-2020017471

PATIENT
  Age: 50 Year
  Sex: Female

DRUGS (1)
  1. XELJANZ XR [Suspect]
     Active Substance: TOFACITINIB CITRATE
     Indication: PSORIATIC ARTHROPATHY
     Dosage: 11 MG, DAILY
     Route: 048
     Dates: start: 201912

REACTIONS (7)
  - Psoriatic arthropathy [Unknown]
  - Rash [Unknown]
  - Mobility decreased [Unknown]
  - Hypoaesthesia [Unknown]
  - Night sweats [Recovering/Resolving]
  - Dyspnoea [Unknown]
  - Feeling hot [Unknown]
